FAERS Safety Report 21043369 (Version 1)
Quarter: 2022Q3

REPORT INFORMATION
  Report Type: Spontaneous
  Country: CN (occurrence: CN)
  Receive Date: 20220705
  Receipt Date: 20220705
  Transmission Date: 20221027
  Serious: Yes (Other)
  Sender: FDA-Public Use
  Company Number: CN-PFIZER INC-PV202200014524

PATIENT
  Age: 23 Year
  Sex: Male
  Weight: 50 kg

DRUGS (7)
  1. ZYVOX [Suspect]
     Active Substance: LINEZOLID
     Indication: Pulmonary tuberculosis
     Dosage: 0.6 G, 1X/DAY
     Route: 048
     Dates: start: 20220318, end: 20220518
  2. ISONIAZID [Suspect]
     Active Substance: ISONIAZID
     Indication: Pulmonary tuberculosis
     Dosage: 300 MG, 1X/DAY
     Route: 048
     Dates: start: 20220318
  3. MEDROL [Concomitant]
     Active Substance: METHYLPREDNISOLONE
     Indication: Pulmonary tuberculosis
     Dosage: 16 MG, 1X/DAY
     Route: 048
     Dates: start: 20220318, end: 20220506
  4. VORICONAZOLE [Concomitant]
     Active Substance: VORICONAZOLE
     Indication: Pulmonary tuberculosis
     Dosage: 200 MG, 2X/DAY
     Route: 048
     Dates: start: 20220318, end: 20220512
  5. PYRAZINAMIDE [Concomitant]
     Active Substance: PYRAZINAMIDE
     Indication: Pulmonary tuberculosis
     Dosage: 0.5 G, 3X/DAY
     Route: 048
     Dates: start: 20220318, end: 20220525
  6. ETHAMBUTOL HYDROCHLORIDE [Concomitant]
     Active Substance: ETHAMBUTOL HYDROCHLORIDE
     Indication: Pulmonary tuberculosis
     Dosage: 0.75 G, 1X/DAY
     Route: 048
     Dates: start: 20220318, end: 20220525
  7. MOXIFLOXACIN HYDROCHLORIDE [Concomitant]
     Active Substance: MOXIFLOXACIN HYDROCHLORIDE
     Indication: Pulmonary tuberculosis
     Dosage: 400 MG, 1X/DAY
     Route: 048
     Dates: start: 20220318, end: 20220525

REACTIONS (2)
  - Neuritis [Recovering/Resolving]
  - Off label use [Unknown]

NARRATIVE: CASE EVENT DATE: 20220318
